FAERS Safety Report 14412130 (Version 1)
Quarter: 2018Q1

REPORT INFORMATION
  Report Type: Spontaneous
  Country: DE (occurrence: DE)
  Receive Date: 20180119
  Receipt Date: 20180119
  Transmission Date: 20180509
  Serious: Yes (Hospitalization)
  Sender: FDA-Public Use
  Company Number: PHHY2018DE003399

PATIENT
  Age: 48 Year
  Sex: Male

DRUGS (2)
  1. IBUPROFEN. [Suspect]
     Active Substance: IBUPROFEN
     Dosage: 90 DF, UNK
     Route: 048
  2. IBUPROFEN. [Suspect]
     Active Substance: IBUPROFEN
     Indication: PAIN
     Dosage: 3 DF, QD
     Route: 065

REACTIONS (7)
  - Toxicity to various agents [Recovering/Resolving]
  - Hypotension [Recovering/Resolving]
  - Metabolic acidosis [Recovering/Resolving]
  - Acute kidney injury [Unknown]
  - Somnolence [Recovering/Resolving]
  - Intentional overdose [Recovered/Resolved]
  - Tachycardia [Recovering/Resolving]
